FAERS Safety Report 8166478-5 (Version None)
Quarter: 2012Q1

REPORT INFORMATION
  Report Type: 
  Country: None (occurrence: None)
  Receive Date: 20120227
  Receipt Date: 20111017
  Transmission Date: 20120608
  Serious: No
  Sender: FDA-Public Use
  Company Number: US-MYLANLABS-2011S1018548

PATIENT
  Age: 58 Year
  Sex: Female

DRUGS (3)
  1. AMNESTEEM [Suspect]
     Dosage: 2 DAYS ON AND 1 DAY OFF
     Route: 048
     Dates: start: 20090701
  2. ATARAX [Concomitant]
     Route: 048
  3. LIDEX [Concomitant]
     Route: 061

REACTIONS (2)
  - DYSPNOEA [None]
  - PAIN [None]
